FAERS Safety Report 17329834 (Version 2)
Quarter: 2020Q1

REPORT INFORMATION
  Report Type: Report from Study
  Country: BR (occurrence: BR)
  Receive Date: 20200128
  Receipt Date: 20200302
  Transmission Date: 20200409
  Serious: Yes (Hospitalization, Other)
  Sender: FDA-Public Use
  Company Number: BR-JNJFOC-20180803095

PATIENT
  Age: 41 Year
  Sex: Male
  Weight: 90 kg

DRUGS (6)
  1. INVANZ [Concomitant]
     Active Substance: ERTAPENEM SODIUM
  2. QUETIAPINE. [Concomitant]
     Active Substance: QUETIAPINE
     Route: 065
  3. INVEGA SUSTENNA [Suspect]
     Active Substance: PALIPERIDONE PALMITATE
     Dosage: 1 EVERY 30 DAYS
     Route: 030
     Dates: start: 20171020
  4. QUETIAPINE. [Concomitant]
     Active Substance: QUETIAPINE
     Dosage: AT NIGHT
     Route: 065
  5. TIGECYCLINE. [Concomitant]
     Active Substance: TIGECYCLINE
  6. INVEGA SUSTENNA [Suspect]
     Active Substance: PALIPERIDONE PALMITATE
     Indication: SCHIZOPHRENIA
     Route: 030
     Dates: start: 201710

REACTIONS (8)
  - Klebsiella infection [Unknown]
  - Post-traumatic stress disorder [Unknown]
  - Schizophrenia [Unknown]
  - Weight decreased [Unknown]
  - Multiple fractures [Unknown]
  - Osteomyelitis [Unknown]
  - Secretion discharge [Unknown]
  - Fall [Unknown]

NARRATIVE: CASE EVENT DATE: 201805
